FAERS Safety Report 8619269-2 (Version None)
Quarter: 2012Q3

REPORT INFORMATION
  Report Type: 
  Country: None (occurrence: None)
  Receive Date: 20120824
  Receipt Date: 20120815
  Transmission Date: 20120928
  Serious: No
  Sender: FDA-Public Use
  Company Number: US-JNJFOC-20120808668

PATIENT
  Age: 20 Year
  Sex: Female

DRUGS (1)
  1. INVEGA SUSTENNA [Suspect]
     Indication: ACCIDENTAL EXPOSURE
     Route: 061
     Dates: start: 20120814, end: 20120814

REACTIONS (2)
  - DEVICE LEAKAGE [None]
  - ACCIDENTAL EXPOSURE [None]
